FAERS Safety Report 8536230-7 (Version None)
Quarter: 2012Q3

REPORT INFORMATION
  Report Type: 
  Country: None (occurrence: None)
  Receive Date: 20120725
  Receipt Date: 20120719
  Transmission Date: 20120928
  Serious: Yes (Other)
  Sender: FDA-Public Use
  Company Number: US-PFIZER INC-2012175583

PATIENT
  Sex: Female

DRUGS (22)
  1. FLEXERIL [Concomitant]
     Indication: MUSCLE SPASMS
     Dosage: 10 MG, AS NEEDED (EVERY 8 HOURS PRN)
     Route: 048
  2. ASPIRIN [Concomitant]
     Dosage: 81 MG, ENTERIC COATED 1 TABLET BY MOUTH QAM
     Route: 048
  3. FORTICAL [Concomitant]
     Dosage: 200IU/1SPRAY NASAL SPRAY 1 SPRAY IN 1 NOSTRIL DAILY. ALTERNATE NOSTRILS DAILY
     Route: 045
  4. VITAMIN D [Concomitant]
     Dosage: 2000 IU, 1X/DAY (1000IU TABLET TAKE 2 TABLET BY MOUTH DAILY)
     Route: 048
  5. MULTI-VITAMINS [Concomitant]
     Dosage: 1 PO BID
     Route: 048
  6. HYDRAZINE HYDROCHLORIDE [Concomitant]
     Indication: BLOOD PRESSURE ABNORMAL
     Dosage: 25 MG, EVERY 8 HOURS
     Route: 048
  7. CELEBREX [Suspect]
     Dosage: 200 MG, 1X/DAY
     Route: 048
  8. XALATAN [Suspect]
     Dosage: 0.005%, 1 DROP EACH EYE AT HS
     Route: 047
  9. HYDROCODONE BITARTRATE + ACETAMINOPHEN [Concomitant]
     Dosage: 10MG/325MG TABLET 1 TABLET BY MOUTH Q 4 TO 6 HOURS
     Route: 048
  10. ASCORBIC ACID [Concomitant]
     Dosage: 500 MG, 1X/DAY
     Route: 048
  11. OMEPRAZOLE [Concomitant]
     Dosage: 20 MG, 2X/DAY
     Route: 048
  12. CALCIUM CARBONATE/ VITAMIN D [Concomitant]
     Dosage: 600MG/200IU, 2X/DAY
     Route: 048
  13. COSOPT [Concomitant]
     Dosage: INSTILL 1 DROP TO BOTH EYE, 2X/DAY
     Route: 046
  14. LYRICA [Suspect]
     Dosage: 150 MG, 1X/DAY
     Route: 048
  15. PRINIVIL [Concomitant]
     Dosage: 5 MG, 1X/DAY
     Route: 048
  16. COSOPT [Concomitant]
     Dosage: INSTILL 1 DROP TO AFFECTED EYE, 2X/DAY
     Route: 047
  17. MULTI-VITAMINS [Concomitant]
     Dosage: UNK, 1X/DAY (1 TABLET BY MOUTH DAILY)
     Route: 048
  18. ATENOLOL [Concomitant]
     Dosage: 25 MG, 1X/DAY
     Route: 048
  19. SYNTHROID [Concomitant]
     Dosage: 0.075 MG, 1X/DAY
     Route: 048
  20. FERROUS SULFATE TAB [Concomitant]
     Dosage: 325 MG, 3X/DAY
     Route: 048
  21. OMEGA-3 TRIGLYCERIDES [Concomitant]
     Dosage: 2000 MG, 1X/DAY (1000 MG 2 DAILY)
  22. SENNA [Concomitant]
     Dosage: 8.6 MG, (1-3 TABLET PO BID PRN)
     Route: 048

REACTIONS (8)
  - BACK PAIN [None]
  - ESSENTIAL HYPERTENSION [None]
  - CATARACT [None]
  - SYSTEMIC LUPUS ERYTHEMATOSUS [None]
  - GLAUCOMA [None]
  - HYPOTHYROIDISM [None]
  - SINUS BRADYCARDIA [None]
  - RENAL FAILURE CHRONIC [None]
